FAERS Safety Report 23863456 (Version 1)
Quarter: 2024Q2

REPORT INFORMATION
  Report Type: Spontaneous
  Country: US (occurrence: None)
  Receive Date: 20240515
  Receipt Date: 20240515
  Transmission Date: 20240716
  Serious: Yes (Life-Threatening)
  Sender: FDA-Public Use
  Company Number: None

PATIENT
  Age: 84 Year
  Sex: Female
  Weight: 61.23 kg

DRUGS (6)
  1. DICLOFENAC SODIUM 1% GEL [Suspect]
     Active Substance: DICLOFENAC SODIUM
     Indication: Meniscus injury
     Dosage: FREQUENCY : 3 TIMES A DAY;?APPLY 3 TIMES DAILY
     Route: 061
     Dates: start: 20240428
  2. LEVOTHYROXINE [Concomitant]
     Active Substance: LEVOTHYROXINE\LEVOTHYROXINE SODIUM
  3. IBUFROFEN [Concomitant]
  4. ACETAMINOPHEN [Concomitant]
     Active Substance: ACETAMINOPHEN
  5. VITAMIN D [Concomitant]
     Active Substance: VITAMIN D NOS
  6. TROLAMINE SALICYLATE [Concomitant]
     Active Substance: TROLAMINE SALICYLATE

REACTIONS (3)
  - Cough [None]
  - Erythema [None]
  - Lacrimation increased [None]

NARRATIVE: CASE EVENT DATE: 20240428
